FAERS Safety Report 20417448 (Version 1)
Quarter: 2022Q1

REPORT INFORMATION
  Report Type: Spontaneous
  Country: AR (occurrence: AR)
  Receive Date: 20220202
  Receipt Date: 20220202
  Transmission Date: 20220423
  Serious: Yes (Other)
  Sender: FDA-Public Use
  Company Number: AR-PFIZER INC-202200123216

PATIENT
  Age: 35 Year
  Sex: Female

DRUGS (3)
  1. TALZENNA [Suspect]
     Active Substance: TALAZOPARIB TOSYLATE
     Indication: Breast cancer metastatic
     Dosage: 1 MG, 1X/DAY
     Dates: start: 20211027, end: 20220104
  2. TALZENNA [Suspect]
     Active Substance: TALAZOPARIB TOSYLATE
     Dosage: 0.50 MG
  3. TALZENNA [Suspect]
     Active Substance: TALAZOPARIB TOSYLATE
     Dosage: 0.75 MG

REACTIONS (2)
  - Bone marrow disorder [Not Recovered/Not Resolved]
  - Toxicity to various agents [Not Recovered/Not Resolved]
